FAERS Safety Report 20345181 (Version 1)
Quarter: 2022Q1

REPORT INFORMATION
  Report Type: Report from Study
  Country: US (occurrence: None)
  Receive Date: 20220118
  Receipt Date: 20220118
  Transmission Date: 20220424
  Serious: Yes (Other)
  Sender: FDA-Public Use
  Company Number: US-ROCHE-2141446

PATIENT
  Age: 65 Year
  Sex: Male
  Weight: 93.4 kg

DRUGS (4)
  1. ATEZOLIZUMAB [Suspect]
     Active Substance: ATEZOLIZUMAB
     Indication: Cholangiocarcinoma
     Dosage: IV OVER 30-60 MINUTES ON DAYS 1 AND 15 (AS PER PROTOCOL)?LAST DOSE OF ATEZOLIZUMAB ADMINISTERED ON 1
     Route: 042
     Dates: start: 20180327, end: 20180410
  2. ATEZOLIZUMAB [Suspect]
     Active Substance: ATEZOLIZUMAB
     Indication: Adenocarcinoma
  3. COBIMETINIB [Suspect]
     Active Substance: COBIMETINIB
     Indication: Cholangiocarcinoma
     Dosage: LAST DOSE OF ATEZOLIZUMAB ADMINISTERED ON 10/APR/2018
     Route: 042
     Dates: start: 20180327, end: 20180410
  4. COBIMETINIB [Suspect]
     Active Substance: COBIMETINIB
     Indication: Adenocarcinoma

REACTIONS (1)
  - Hyperglycaemia [Not Recovered/Not Resolved]

NARRATIVE: CASE EVENT DATE: 20180423
